FAERS Safety Report 5514290-5 (Version None)
Quarter: 2007Q4

REPORT INFORMATION
  Report Type: 
  Country: None (occurrence: None)
  Receive Date: 20071102
  Receipt Date: 20070723
  Transmission Date: 20080405
  Serious: Yes (Disabling)
  Sender: FDA-Public Use
  Company Number: 489849

PATIENT
  Sex: Female

DRUGS (1)
  1. BONIVA [Suspect]
     Indication: OSTEOPOROSIS
     Dates: start: 20060615

REACTIONS (6)
  - ABASIA [None]
  - ARTHRALGIA [None]
  - BACK PAIN [None]
  - IMMOBILE [None]
  - MUSCULAR WEAKNESS [None]
  - SYNCOPE [None]
